FAERS Safety Report 6736496-X (Version None)
Quarter: 2010Q2

REPORT INFORMATION
  Report Type: 
  Country: None (occurrence: None)
  Receive Date: 20100521
  Receipt Date: 20100512
  Transmission Date: 20101027
  Serious: Yes (Disabling)
  Sender: FDA-Public Use
  Company Number: FI-SHIRE-SPV1-2010-00577

PATIENT

DRUGS (7)
  1. FOSRENOL [Suspect]
     Indication: HYPERPHOSPHATAEMIA
     Dosage: 750 MG, 4X/DAY:QID
     Route: 048
     Dates: start: 20080226, end: 20100323
  2. CINACALCET [Suspect]
     Dosage: 30 MG, UNK
     Dates: start: 20090901, end: 20100323
  3. RENAGEL                            /01459901/ [Suspect]
     Indication: HYPERPHOSPHATAEMIA
     Dosage: 800 MG, 8X/DAY
     Dates: start: 20080301
  4. PARICALCITOL [Concomitant]
  5. ARANESP [Concomitant]
     Dosage: 40 UG, 1X/WEEK
     Dates: start: 20070101
  6. AMARYL [Concomitant]
     Dosage: 2 MG, UNK
     Dates: start: 20050101
  7. VITAMIN A [Concomitant]
     Indication: DRUG USE FOR UNKNOWN INDICATION

REACTIONS (1)
  - OSTEONECROSIS [None]
